FAERS Safety Report 7945354-4 (Version None)
Quarter: 2011Q4

REPORT INFORMATION
  Report Type: 
  Country: None (occurrence: None)
  Receive Date: 20111129
  Receipt Date: 20110419
  Transmission Date: 20120403
  Serious: No
  Sender: FDA-Public Use
  Company Number: US-GLAXOSMITHKLINE-A0923599A

PATIENT
  Age: 55 Year
  Sex: Female

DRUGS (2)
  1. WELLBUTRIN SR [Suspect]
     Indication: DEPRESSION
     Dosage: 100MG TWICE PER DAY
     Route: 048
     Dates: start: 20100419
  2. SYNTHROID [Concomitant]

REACTIONS (7)
  - GASTROOESOPHAGEAL REFLUX DISEASE [None]
  - CONSTIPATION [None]
  - HYPOAESTHESIA [None]
  - ABDOMINAL DISTENSION [None]
  - DIARRHOEA [None]
  - ABDOMINAL PAIN UPPER [None]
  - BODY TEMPERATURE FLUCTUATION [None]
